FAERS Safety Report 6387444-6 (Version None)
Quarter: 2009Q3

REPORT INFORMATION
  Report Type: 
  Country: None (occurrence: None)
  Receive Date: 20090930
  Receipt Date: 20090921
  Transmission Date: 20100115
  Serious: Yes (Other)
  Sender: FDA-Public Use
  Company Number: 390676

PATIENT
  Age: 21 Year
  Sex: Female

DRUGS (2)
  1. EPINEPHRINE [Suspect]
     Indication: URTICARIA
     Dosage: INJECTION
     Route: 042
  2. (ORAL CONTRACEPTIVE NOS) [Concomitant]

REACTIONS (13)
  - DIZZINESS [None]
  - DYSPNOEA [None]
  - HEADACHE [None]
  - MACULOPATHY [None]
  - NAUSEA [None]
  - RETINOGRAM ABNORMAL [None]
  - RETINOPATHY [None]
  - SCOTOMA [None]
  - TREMOR [None]
  - VISION BLURRED [None]
  - VISUAL ACUITY REDUCED [None]
  - VISUAL FIELD DEFECT [None]
  - VISUAL IMPAIRMENT [None]
